FAERS Safety Report 10613327 (Version 2)
Quarter: 2014Q4

REPORT INFORMATION
  Report Type: Report from Study
  Country: US (occurrence: US)
  Receive Date: 20141128
  Receipt Date: 20141209
  Transmission Date: 20150529
  Serious: Yes (Death, Hospitalization, Other)
  Sender: FDA-Public Use
  Company Number: US-BIOGENIDEC-2014BI124438

PATIENT
  Age: 64 Year
  Sex: Female

DRUGS (3)
  1. AVONEX [Suspect]
     Active Substance: INTERFERON BETA-1A
     Indication: MULTIPLE SCLEROSIS
     Route: 030
     Dates: start: 20000601, end: 20120625
  2. DILAUDID [Concomitant]
     Active Substance: HYDROMORPHONE HYDROCHLORIDE
  3. AVONEX [Suspect]
     Active Substance: INTERFERON BETA-1A
     Indication: MULTIPLE SCLEROSIS
     Route: 030
     Dates: start: 19990301

REACTIONS (9)
  - Sepsis [Fatal]
  - Muscle tightness [Unknown]
  - Infected skin ulcer [Fatal]
  - Aphasia [Unknown]
  - Urinary tract infection [Fatal]
  - Blood pressure decreased [Unknown]
  - Secondary progressive multiple sclerosis [Unknown]
  - Aphagia [Unknown]
  - Multiple sclerosis [Fatal]

NARRATIVE: CASE EVENT DATE: 2014
